FAERS Safety Report 5142077-4 (Version None)
Quarter: 2006Q4

REPORT INFORMATION
  Report Type: 
  Country: None (occurrence: None)
  Receive Date: 20061102
  Receipt Date: 20060909
  Transmission Date: 20070319
  Serious: Yes (Hospitalization)
  Sender: FDA-Public Use
  Company Number: US-AMGEN-US193072

PATIENT
  Age: 41 Year
  Sex: Female

DRUGS (1)
  1. EPOGEN [Suspect]
     Indication: RENAL FAILURE CHRONIC
     Route: 058
     Dates: start: 20060201

REACTIONS (6)
  - CARDIOMEGALY [None]
  - CHEST PAIN [None]
  - CONDITION AGGRAVATED [None]
  - PAIN [None]
  - SKIN ULCER [None]
  - VASCULITIS [None]
